FAERS Safety Report 4733350-X (Version None)
Quarter: 2005Q3

REPORT INFORMATION
  Report Type: 
  Country: None (occurrence: None)
  Receive Date: 20050803
  Receipt Date: 20050513
  Transmission Date: 20060218
  Serious: Yes (Hospitalization, Other)
  Sender: FDA-Public Use
  Company Number: US-BRISTOL-MYERS SQUIBB COMPANY-12968038

PATIENT
  Age: 58 Year
  Sex: Male
  Weight: 84 kg

DRUGS (6)
  1. PRAVACHOL [Suspect]
     Indication: BLOOD CHOLESTEROL INCREASED
     Route: 048
     Dates: start: 20010319, end: 20041201
  2. ACEBUTOLOL HCL [Concomitant]
  3. ASPIRIN [Concomitant]
  4. MULTI-VITAMIN [Concomitant]
  5. FISH OIL [Concomitant]
     Dosage: DOSAGE FORM = CAPSULE
  6. SELENIUM SULFIDE [Concomitant]

REACTIONS (4)
  - CHOLECYSTECTOMY [None]
  - FATIGUE [None]
  - HEPATITIS [None]
  - HYPERTENSION [None]
